FAERS Safety Report 7948769-3 (Version None)
Quarter: 2011Q4

REPORT INFORMATION
  Report Type: 
  Country: None (occurrence: None)
  Receive Date: 20111130
  Receipt Date: 20111121
  Transmission Date: 20120403
  Serious: Yes (Hospitalization)
  Sender: FDA-Public Use
  Company Number: US-NOVOPROD-339933

PATIENT

DRUGS (4)
  1. VICTOZA [Suspect]
     Indication: TYPE 2 DIABETES MELLITUS
     Dosage: 1.8 MG, QD
     Route: 058
     Dates: start: 20110818
  2. FORTAMET [Concomitant]
     Indication: TYPE 2 DIABETES MELLITUS
  3. GLUCOPHAGE [Concomitant]
     Indication: TYPE 2 DIABETES MELLITUS
  4. GLUCOTROL [Concomitant]
     Indication: TYPE 2 DIABETES MELLITUS

REACTIONS (1)
  - HYPERTROPHIC CARDIOMYOPATHY [None]
